FAERS Safety Report 9908823 (Version 1)
Quarter: 2014Q1

REPORT INFORMATION
  Report Type: Spontaneous
  Country: SE (occurrence: None)
  Receive Date: 20140212
  Receipt Date: 20140212
  Transmission Date: 20141002
  Serious: Yes (Death)
  Sender: FDA-Public Use
  Company Number: 2014P1000932

PATIENT
  Age: 86 Year
  Sex: Female

DRUGS (3)
  1. CITALOPRAM [Suspect]
     Dosage: UNKNOWN - UNKNOWN  THERAPY DATES
  2. NORTRIPTYLINE [Suspect]
     Dosage: UNKNOWN - UNKNOWN  THERAPY DATES
  3. 7-AMINO-NITRAZEPAM [Concomitant]
     Dosage: UNKNOWN - UNKNOWN THERAPY DATES

REACTIONS (2)
  - Poisoning [None]
  - Completed suicide [None]
